FAERS Safety Report 8221235-6 (Version None)
Quarter: 2012Q1

REPORT INFORMATION
  Report Type: 
  Country: None (occurrence: None)
  Receive Date: 20120320
  Receipt Date: 20120312
  Transmission Date: 20120608
  Serious: Yes (Other)
  Sender: FDA-Public Use
  Company Number: AU-COVIDIEN/TYCO HEALTHCARE/MALLINCKRODT-T201201038

PATIENT
  Age: 41 Day
  Sex: Male
  Weight: 2.41 kg

DRUGS (9)
  1. MORPHINE [Suspect]
     Dosage: 150 UG/KG/HR (DAY 41 OF LIFE)
     Route: 042
  2. FENTANYL CITRATE [Suspect]
     Dosage: BOLUSES 2 UG/KG (DAY 41 OF LIFE)
     Route: 042
  3. MIDAZOLAM [Concomitant]
     Indication: AGITATION
  4. CLONIDINE [Concomitant]
     Indication: ANALGESIC THERAPY
     Dosage: 0.33 UG/KG/HR (DAY 41 OF LIFE)
     Route: 042
  5. MORPHINE [Suspect]
     Indication: ANALGESIC THERAPY
     Dosage: 100 UG/KG/HR (DAY 41 OF LIFE)
     Route: 042
  6. MORPHINE [Suspect]
     Dosage: 200 UG/KG/HR (DAY 42 AND 43 OF LIFE)
     Route: 042
  7. MORPHINE [Suspect]
     Dosage: MULTIPLE BOLUSES, 100 UG/KG (DAY 42 OF LIFE)
  8. FENTANYL CITRATE [Suspect]
     Indication: ANALGESIC THERAPY
     Dosage: 6 UG/KG/HR (DAY 35 OF LIFE THROUGH DAY 41)
     Route: 042
  9. CLONIDINE [Concomitant]
     Dosage: 0.45 UG/KG/HR (DAY 42 AND 43 OF LIFE)

REACTIONS (8)
  - TACHYCARDIA [None]
  - IRRITABILITY [None]
  - AGITATION [None]
  - INTESTINAL ISCHAEMIA [None]
  - COAGULOPATHY [None]
  - SEPSIS [None]
  - RESPIRATORY DISORDER [None]
  - HYPERAESTHESIA [None]
